FAERS Safety Report 5399658-2 (Version None)
Quarter: 2007Q3

REPORT INFORMATION
  Report Type: 
  Country: None (occurrence: None)
  Receive Date: 20070727
  Receipt Date: 20070717
  Transmission Date: 20080115
  Serious: Yes (Hospitalization, Other)
  Sender: FDA-Public Use
  Company Number: JP-PFIZER INC-2007055796

PATIENT
  Sex: Male

DRUGS (16)
  1. ZOLOFT [Suspect]
     Indication: BIPOLAR I DISORDER
     Route: 048
     Dates: start: 20070501, end: 20070605
  2. ZOLOFT [Suspect]
     Indication: DEPRESSION
  3. ALCOHOL [Suspect]
  4. RISPERDAL [Concomitant]
     Indication: BIPOLAR I DISORDER
     Route: 048
  5. ALL OTHER THERAPEUTIC PRODUCTS [Concomitant]
     Route: 048
  6. LIMAS [Concomitant]
     Indication: BIPOLAR I DISORDER
     Route: 048
  7. PROTHIADEN [Concomitant]
     Indication: BIPOLAR I DISORDER
     Route: 048
  8. TOLEDOMIN [Concomitant]
     Indication: BIPOLAR I DISORDER
     Route: 048
     Dates: start: 20070501, end: 20070715
  9. TOLEDOMIN [Concomitant]
     Indication: DEPRESSION
  10. SEPAZON [Concomitant]
     Indication: BIPOLAR I DISORDER
     Route: 048
  11. DOGMATYL [Concomitant]
     Indication: BIPOLAR I DISORDER
     Route: 048
  12. NITRAZEPAM [Concomitant]
     Indication: BIPOLAR I DISORDER
     Route: 048
  13. DEPAS [Concomitant]
     Indication: BIPOLAR I DISORDER
     Route: 048
  14. SEROQUEL [Concomitant]
     Indication: BIPOLAR I DISORDER
     Route: 048
  15. TETRAMIDE [Concomitant]
     Indication: BIPOLAR I DISORDER
     Route: 048
  16. AKINETON [Concomitant]
     Route: 048

REACTIONS (3)
  - ALCOHOLIC LIVER DISEASE [None]
  - HEPATITIS ACUTE [None]
  - LIVER DISORDER [None]
